FAERS Safety Report 10888570 (Version 2)
Quarter: 2015Q2

REPORT INFORMATION
  Report Type: Report from Study
  Country: US (occurrence: US)
  Receive Date: 20150305
  Receipt Date: 20150506
  Transmission Date: 20150821
  Serious: Yes (Other)
  Sender: FDA-Public Use
  Company Number: US-SA-2014SA162411

PATIENT
  Age: 59 Year
  Sex: Female

DRUGS (2)
  1. AUBAGIO [Suspect]
     Active Substance: TERIFLUNOMIDE
     Indication: MULTIPLE SCLEROSIS
     Route: 048
     Dates: start: 20150209
  2. AUBAGIO [Suspect]
     Active Substance: TERIFLUNOMIDE
     Indication: MULTIPLE SCLEROSIS
     Route: 048
     Dates: start: 20130521, end: 20141229

REACTIONS (19)
  - Osteoarthritis [Unknown]
  - Fatigue [Unknown]
  - Cataract operation [Unknown]
  - Depression [Unknown]
  - Malaise [Unknown]
  - Depressed mood [Unknown]
  - Clumsiness [Unknown]
  - Pain [Unknown]
  - Hypoaesthesia [Unknown]
  - Limb discomfort [Unknown]
  - Tremor [Unknown]
  - Orthopaedic procedure [Unknown]
  - Sinus operation [Unknown]
  - Paraesthesia [Unknown]
  - Asthenia [Unknown]
  - Cognitive disorder [Unknown]
  - Peripheral swelling [Unknown]
  - Communication disorder [Unknown]
  - Gait disturbance [Unknown]

NARRATIVE: CASE EVENT DATE: 20150220
